FAERS Safety Report 4498279-3 (Version None)
Quarter: 2004Q4

REPORT INFORMATION
  Report Type: 
  Country: None (occurrence: None)
  Receive Date: 20040927
  Receipt Date: 20040614
  Transmission Date: 20050328
  Serious: No
  Sender: FDA-Public Use
  Company Number: USA040670086

PATIENT
  Age: 56 Year
  Sex: Female
  Weight: 84 kg

DRUGS (11)
  1. SYMBYAX [Suspect]
     Indication: DEPRESSION
     Dates: start: 20040414
  2. STRATTERA [Suspect]
     Indication: IMPULSE-CONTROL DISORDER
  3. ZYPREXA [Suspect]
  4. LEXAPRO [Concomitant]
  5. CONCERTA [Concomitant]
  6. XANAX [Concomitant]
  7. PRINIVIL [Concomitant]
  8. LIPITOR [Concomitant]
  9. ACTONEL [Concomitant]
  10. SERZONE [Concomitant]
  11. ABILIFY [Concomitant]

REACTIONS (4)
  - ASTHENIA [None]
  - BLOOD GLUCOSE INCREASED [None]
  - SOMNOLENCE [None]
  - WEIGHT INCREASED [None]
